FAERS Safety Report 5609090-1 (Version None)
Quarter: 2008Q1

REPORT INFORMATION
  Report Type: 
  Country: None (occurrence: None)
  Receive Date: 20080130
  Receipt Date: 20080130
  Transmission Date: 20080703
  Serious: Yes (Other)
  Sender: FDA-Public Use
  Company Number: None

PATIENT
  Sex: Female
  Weight: 103.4201 kg

DRUGS (3)
  1. CARISOPRODOL [Suspect]
     Indication: BACK DISORDER
     Dosage: 1 - QID PO
     Route: 048
     Dates: start: 20070401
  2. CARISOPRODOL [Suspect]
     Indication: BACK PAIN
     Dosage: 1 - QID PO
     Route: 048
     Dates: start: 20070401
  3. VICODIN ES [Suspect]
     Indication: BACK DISORDER
     Dosage: 1 QID PO
     Route: 048
     Dates: start: 20070401

REACTIONS (2)
  - NAUSEA [None]
  - RASH [None]
